FAERS Safety Report 12601889 (Version 2)
Quarter: 2016Q3

REPORT INFORMATION
  Report Type: Report from Study
  Country: CA (occurrence: CA)
  Receive Date: 20160728
  Receipt Date: 20160819
  Transmission Date: 20161109
  Serious: Yes (Other)
  Sender: FDA-Public Use
  Company Number: CA-JNJFOC-20160719089

PATIENT
  Age: 63 Year
  Sex: Male
  Weight: 98 kg

DRUGS (3)
  1. REMICADE [Suspect]
     Active Substance: INFLIXIMAB
     Indication: CROHN^S DISEASE
     Route: 042
     Dates: start: 20151001
  2. REMICADE [Suspect]
     Active Substance: INFLIXIMAB
     Indication: CROHN^S DISEASE
     Route: 042
     Dates: start: 20160720
  3. LOSEC [Concomitant]
     Active Substance: OMEPRAZOLE
     Route: 065

REACTIONS (8)
  - Inappropriate schedule of drug administration [Unknown]
  - Bone abscess [Unknown]
  - Pain in extremity [Unknown]
  - Abdominal pain [Not Recovered/Not Resolved]
  - Off label use [Unknown]
  - Headache [Unknown]
  - Syncope [Unknown]
  - Product use issue [Unknown]

NARRATIVE: CASE EVENT DATE: 20151001
